FAERS Safety Report 8184755-9 (Version None)
Quarter: 2012Q1

REPORT INFORMATION
  Report Type: 
  Country: None (occurrence: None)
  Receive Date: 20120305
  Receipt Date: 20120305
  Transmission Date: 20120608
  Serious: Yes (Hospitalization)
  Sender: FDA-Public Use
  Company Number: None

PATIENT
  Sex: Male
  Weight: 73.481 kg

DRUGS (1)
  1. DOXAZOSIN MESYLATE [Suspect]
     Indication: BLOOD PRESSURE INCREASED
     Dosage: 2 TABLETS
     Dates: start: 20100226, end: 20120303

REACTIONS (1)
  - DEEP VEIN THROMBOSIS [None]
